FAERS Safety Report 12660856 (Version 2)
Quarter: 2016Q3

REPORT INFORMATION
  Report Type: Spontaneous
  Country: US (occurrence: US)
  Receive Date: 20160817
  Receipt Date: 20160901
  Transmission Date: 20161109
  Serious: No
  Sender: FDA-Public Use
  Company Number: US-RELYPSA-RLY2016001112

PATIENT
  Age: 49 Year
  Sex: Female

DRUGS (19)
  1. SODIUM BICARBONATE. [Concomitant]
     Active Substance: SODIUM BICARBONATE
  2. VELTASSA [Suspect]
     Active Substance: PATIROMER
     Indication: HYPERKALAEMIA
     Dosage: 8.4 G, QD
     Route: 048
     Dates: start: 20160603
  3. ACETAMINOPHEN. [Concomitant]
     Active Substance: ACETAMINOPHEN
  4. ASPIRIN                            /00002701/ [Concomitant]
     Active Substance: ASPIRIN
  5. FLUDROCORTISONE ACETATE. [Concomitant]
     Active Substance: FLUDROCORTISONE ACETATE
  6. FUROSEMIDE. [Concomitant]
     Active Substance: FUROSEMIDE
  7. TRI-SPRINTEC [Concomitant]
     Active Substance: ETHINYL ESTRADIOL\NORGESTIMATE
  8. TRADJENTA [Concomitant]
     Active Substance: LINAGLIPTIN
  9. VALSARTAN. [Concomitant]
     Active Substance: VALSARTAN
  10. FERROUS SULFATE. [Concomitant]
     Active Substance: FERROUS SULFATE
  11. METFORMIN HCL [Concomitant]
     Active Substance: METFORMIN HYDROCHLORIDE
  12. ALLOPURINOL. [Concomitant]
     Active Substance: ALLOPURINOL
  13. AMLODIPINE BESYLATE. [Concomitant]
     Active Substance: AMLODIPINE BESYLATE
  14. CARVEDILOL. [Concomitant]
     Active Substance: CARVEDILOL
  15. CRESTOR [Concomitant]
     Active Substance: ROSUVASTATIN CALCIUM
  16. FISH OIL [Concomitant]
     Active Substance: FISH OIL
  17. CYCLOSPORINE. [Concomitant]
     Active Substance: CYCLOSPORINE
  18. LANTUS [Concomitant]
     Active Substance: INSULIN GLARGINE
  19. LEVOTHYROXINE SODIUM. [Concomitant]
     Active Substance: LEVOTHYROXINE SODIUM

REACTIONS (4)
  - Ear discomfort [Unknown]
  - Productive cough [Unknown]
  - Nausea [Recovered/Resolved]
  - Dysgeusia [Unknown]

NARRATIVE: CASE EVENT DATE: 201606
